FAERS Safety Report 23561243 (Version 1)
Quarter: 2024Q1

REPORT INFORMATION
  Report Type: Report from Study
  Country: TR (occurrence: TR)
  Receive Date: 20240224
  Receipt Date: 20240224
  Transmission Date: 20240410
  Serious: Yes (Death)
  Sender: FDA-Public Use
  Company Number: TR-Long Grove-000034

PATIENT
  Age: 6 Year
  Sex: Male

DRUGS (2)
  1. CALCITRIOL [Suspect]
     Active Substance: CALCITRIOL
     Indication: Hypophosphataemic osteomalacia
     Dosage: 40 NG/KG
  2. PHOSPHORUS [Suspect]
     Active Substance: PHOSPHORUS
     Indication: Hypophosphataemic osteomalacia

REACTIONS (1)
  - Arteriosclerosis [Fatal]
